FAERS Safety Report 4996914-4 (Version None)
Quarter: 2006Q2

REPORT INFORMATION
  Report Type: 
  Country: None (occurrence: None)
  Receive Date: 20060509
  Receipt Date: 20060426
  Transmission Date: 20061013
  Serious: Yes (Other)
  Sender: FDA-Public Use
  Company Number: GB-GLAXOSMITHKLINE-B0421376A

PATIENT
  Age: 25 Year
  Sex: Male

DRUGS (3)
  1. PAROXETINE [Suspect]
     Route: 048
     Dates: start: 20020501, end: 20031001
  2. ZOPICLONE [Suspect]
     Dosage: 22.5MG PER DAY
     Route: 048
     Dates: start: 20020901, end: 20030901
  3. ALCOHOL [Concomitant]
     Route: 048

REACTIONS (4)
  - AGGRESSION [None]
  - AMNESIA [None]
  - HOMICIDE [None]
  - SLEEP WALKING [None]
